FAERS Safety Report 18440340 (Version 1)
Quarter: 2020Q4

REPORT INFORMATION
  Report Type: Spontaneous
  Country: IT (occurrence: IT)
  Receive Date: 20201029
  Receipt Date: 20201029
  Transmission Date: 20210114
  Serious: Yes (Other)
  Sender: FDA-Public Use
  Company Number: IT-PFIZER INC-2020415444

PATIENT
  Age: 73 Year
  Sex: Male

DRUGS (3)
  1. OCTREOTIDE ACETATE. [Suspect]
     Active Substance: OCTREOTIDE ACETATE
     Indication: NEUROENDOCRINE TUMOUR
     Dosage: UNK
     Dates: start: 20200306, end: 20200414
  2. AXITINIB [Suspect]
     Active Substance: AXITINIB
     Indication: NEUROENDOCRINE TUMOUR
     Dosage: UNK
  3. METFORMIN [Concomitant]
     Active Substance: METFORMIN HYDROCHLORIDE
     Indication: DIABETES MELLITUS
     Dosage: UNK
     Route: 048

REACTIONS (2)
  - Hypothyroidism [Unknown]
  - Renal failure [Unknown]
